FAERS Safety Report 24852795 (Version 1)
Quarter: 2025Q1

REPORT INFORMATION
  Report Type: Spontaneous
  Country: US (occurrence: US)
  Receive Date: 20250116
  Receipt Date: 20250116
  Transmission Date: 20250408
  Serious: Yes (Hospitalization, Other)
  Sender: BRISTOL-MYERS SQUIBB COMPANY
  Company Number: US-BRISTOL-MYERS SQUIBB COMPANY-2025-002440

PATIENT
  Age: 58 Year
  Sex: Female

DRUGS (1)
  1. LENALIDOMIDE [Suspect]
     Active Substance: LENALIDOMIDE
     Indication: Plasma cell myeloma
     Dosage: FREQUENCY: D1-14 EVERY 28 DAYS
     Route: 048
     Dates: start: 20221222, end: 20241230

REACTIONS (8)
  - Pneumonia [Recovering/Resolving]
  - Respiratory distress [Recovering/Resolving]
  - Respiratory syncytial virus infection [Recovering/Resolving]
  - Hypotension [Unknown]
  - Heart rate increased [Unknown]
  - Bone pain [Unknown]
  - Musculoskeletal chest pain [Unknown]
  - Chest pain [Unknown]

NARRATIVE: CASE EVENT DATE: 20241201
